FAERS Safety Report 10288222 (Version 2)
Quarter: 2014Q3

REPORT INFORMATION
  Report Type: Spontaneous
  Country: CA (occurrence: CA)
  Receive Date: 20140709
  Receipt Date: 20140818
  Transmission Date: 20150326
  Serious: Yes (Other)
  Sender: FDA-Public Use
  Company Number: CA-BAYER-2014-101613

PATIENT
  Age: 49 Year
  Sex: Female

DRUGS (1)
  1. CLIMARA 25 [Suspect]
     Active Substance: ESTRADIOL
     Indication: HORMONE REPLACEMENT THERAPY
     Dosage: UNK
     Route: 062
     Dates: start: 20131030, end: 20140624

REACTIONS (2)
  - Product adhesion issue [None]
  - Urticaria [None]
